FAERS Safety Report 24359080 (Version 1)
Quarter: 2024Q3

REPORT INFORMATION
  Report Type: Report from Study
  Country: MD (occurrence: MD)
  Receive Date: 20240924
  Receipt Date: 20240924
  Transmission Date: 20241017
  Serious: Yes (Other)
  Sender: Unknown Manufacturer
  Company Number: MD-ROCHE-3412397

PATIENT

DRUGS (2)
  1. PRALSETINIB [Suspect]
     Active Substance: PRALSETINIB
     Indication: Metastatic neoplasm
     Dosage: ON 11/AUG/2023, HE RECEIVED THE LAST DOSE PRIOR TO ADVERSE EVENT
     Route: 048
     Dates: start: 20230413
  2. PRALSETINIB [Suspect]
     Active Substance: PRALSETINIB
     Dosage: UNK
     Route: 048

REACTIONS (1)
  - Neutrophil count decreased [Recovered/Resolved]

NARRATIVE: CASE EVENT DATE: 20230825
